FAERS Safety Report 7952743-0 (Version None)
Quarter: 2011Q4

REPORT INFORMATION
  Report Type: 
  Country: None (occurrence: None)
  Receive Date: 20111129
  Receipt Date: 20111122
  Transmission Date: 20120403
  Serious: Yes (Hospitalization)
  Sender: FDA-Public Use
  Company Number: OMPQ-NO-1111S-1741

PATIENT
  Age: 81 Year
  Sex: Female

DRUGS (12)
  1. INFLIXIMAB (REMICADE) (INFLIXIMAB) [Concomitant]
  2. POTASSIUM CHLORIDE (DIFFU K) (POTASSIUM CHLORIDE) [Concomitant]
  3. SACCHAROMYCES BOULARDII (ULTRALEVURE) (SACCHAROMYCES BOULARDII) [Concomitant]
  4. FERROUS SULFATE SESQUIHYDRATE (TARDYFERON) (FERROUS SULFATE) [Concomitant]
  5. SODIUM ALGINATE (GAVISCON) (SODIUM ALGINATE) [Concomitant]
  6. COLECALCIFEROL (UVEDOSE) (COLECALCIFEROL) [Concomitant]
  7. PANTOPRAZOLE SODIUM (EUPANTOL) (PANTOPRAZOLE SODIUM) [Concomitant]
  8. OMNIPAQUE 70 [Suspect]
     Indication: LUNG ABSCESS
     Dosage: 60 ML, SINGLE DOSE, INTRAVENOUS
     Route: 042
     Dates: start: 20110929, end: 20110929
  9. ALUMINUM MAGNESIUM SILICATE (SMECTA) (ALUMINUM MAGNESIUM SILICATE, ALU [Concomitant]
  10. LERCANIDIPINE HYDROCHLORIDE LERCANIDIPINE HYDROCHLORIDE (LERCAN) (LERC [Concomitant]
  11. BISOPROLOL FUMARATE (CARDENSIEL) (BISOPROLOL FUMARATE) [Concomitant]
  12. LORAZEPAM [Concomitant]

REACTIONS (2)
  - PAIN IN EXTREMITY [None]
  - INFUSION SITE EXTRAVASATION [None]
